FAERS Safety Report 10263126 (Version 1)
Quarter: 2014Q2

REPORT INFORMATION
  Report Type: Report from Study
  Country: US (occurrence: US)
  Receive Date: 20140626
  Receipt Date: 20140626
  Transmission Date: 20141212
  Serious: Yes (Death)
  Sender: FDA-Public Use
  Company Number: US-MYLANLABS-2014S1002317

PATIENT
  Age: 71 Year
  Sex: Female

DRUGS (7)
  1. CLOZAPINE TABLETS [Suspect]
     Route: 048
     Dates: start: 2011, end: 20140125
  2. FAMOTIDINE [Concomitant]
     Route: 048
  3. MULTIVITAMIN [Concomitant]
     Route: 048
  4. SIMVASTATIN [Concomitant]
     Route: 048
  5. MILK OF MAGNESIA [Concomitant]
     Dosage: PRN
     Route: 048
  6. TYLENOL [Concomitant]
     Dosage: PRN
     Route: 048
  7. ACT ANTICAVITY FLUORIDE RINSE [Concomitant]
     Dosage: USE AS DIRECTED AFTER BRUSHING AND BEFORE BED
     Route: 048

REACTIONS (1)
  - Death [Fatal]
